FAERS Safety Report 5216950-2 (Version None)
Quarter: 2007Q1

REPORT INFORMATION
  Report Type: 
  Country: None (occurrence: None)
  Receive Date: 20070119
  Receipt Date: 20070115
  Transmission Date: 20070707
  Serious: Yes (Death, Other)
  Sender: FDA-Public Use
  Company Number: 2006SP005870

PATIENT
  Age: 78 Year
  Sex: Male
  Weight: 82 kg

DRUGS (13)
  1. TEMODAL [Suspect]
     Indication: ANAPLASTIC ASTROCYTOMA
     Dosage: 250 MG; QD
     Dates: start: 20060405, end: 20060703
  2. ONDANSETRON (CON.) [Concomitant]
  3. FORTECORTIN (CON.) [Concomitant]
  4. PLANTOZOL (CON.) [Concomitant]
  5. L-THYROXIN (CON.) [Concomitant]
  6. TEGRETAL (CON.) [Concomitant]
  7. IMBUN (CON.) [Concomitant]
  8. AMPHO-MORONAL (CON.) [Concomitant]
  9. DOMPERIDONE MALEATE (CON.) [Concomitant]
  10. CLEXANE (PREV.) [Concomitant]
  11. MARCUMAR (PREV.) [Concomitant]
  12. CORTISOONE (CON.) [Concomitant]
  13. RADIATION THERAPY (CON.) [Concomitant]

REACTIONS (2)
  - DEEP VEIN THROMBOSIS [None]
  - NEOPLASM PROGRESSION [None]
